FAERS Safety Report 12628041 (Version 1)
Quarter: 2016Q3

REPORT INFORMATION
  Report Type: Spontaneous
  Country: CN (occurrence: CN)
  Receive Date: 20160807
  Receipt Date: 20160807
  Transmission Date: 20161109
  Serious: Yes (Other)
  Sender: FDA-Public Use
  Company Number: PHHY2016CN106833

PATIENT
  Age: 61 Year
  Sex: Male

DRUGS (2)
  1. ZOLEDRONATE [Suspect]
     Active Substance: ZOLEDRONIC ACID
     Indication: METASTASES TO BONE
     Dosage: UNK UNK, QMO
     Route: 042
  2. INTERFERON [Concomitant]
     Active Substance: INTERFERON
     Indication: RENAL CELL CARCINOMA
     Route: 065

REACTIONS (3)
  - Exposed bone in jaw [Recovered/Resolved]
  - Jaw fracture [Recovered/Resolved]
  - Osteonecrosis of jaw [Recovered/Resolved]
